FAERS Safety Report 25551428 (Version 1)
Quarter: 2025Q3

REPORT INFORMATION
  Report Type: Spontaneous
  Country: EU (occurrence: EU)
  Receive Date: 20250714
  Receipt Date: 20250714
  Transmission Date: 20251020
  Serious: Yes (Other)
  Sender: MYLAN
  Company Number: EU-AUROBINDO-AUR-APL-2025-031263

PATIENT
  Age: 54 Year
  Sex: Male

DRUGS (32)
  1. ALPRAZOLAM [Suspect]
     Active Substance: ALPRAZOLAM
     Indication: Product used for unknown indication
  2. ALPRAZOLAM [Suspect]
     Active Substance: ALPRAZOLAM
     Route: 065
  3. ALPRAZOLAM [Suspect]
     Active Substance: ALPRAZOLAM
     Route: 065
  4. ALPRAZOLAM [Suspect]
     Active Substance: ALPRAZOLAM
  5. ACETAMINOPHEN\CODEINE PHOSPHATE [Concomitant]
     Active Substance: ACETAMINOPHEN\CODEINE PHOSPHATE
     Indication: Product used for unknown indication
     Dosage: UNK, QD (DAILY (120-150 MG))
  6. ACETAMINOPHEN\CODEINE PHOSPHATE [Concomitant]
     Active Substance: ACETAMINOPHEN\CODEINE PHOSPHATE
     Dosage: UNK, QD (DAILY (120-150 MG))
  7. ACETAMINOPHEN\CODEINE PHOSPHATE [Concomitant]
     Active Substance: ACETAMINOPHEN\CODEINE PHOSPHATE
     Dosage: UNK, QD (DAILY (120-150 MG))
     Route: 065
  8. ACETAMINOPHEN\CODEINE PHOSPHATE [Concomitant]
     Active Substance: ACETAMINOPHEN\CODEINE PHOSPHATE
     Dosage: UNK, QD (DAILY (120-150 MG))
     Route: 065
  9. ACETAMINOPHEN\CODEINE PHOSPHATE [Concomitant]
     Active Substance: ACETAMINOPHEN\CODEINE PHOSPHATE
     Dosage: UNK, TID (3 TIMES A DAY)
  10. ACETAMINOPHEN\CODEINE PHOSPHATE [Concomitant]
     Active Substance: ACETAMINOPHEN\CODEINE PHOSPHATE
     Dosage: UNK, TID (3 TIMES A DAY)
  11. ACETAMINOPHEN\CODEINE PHOSPHATE [Concomitant]
     Active Substance: ACETAMINOPHEN\CODEINE PHOSPHATE
     Dosage: UNK, TID (3 TIMES A DAY)
     Route: 065
  12. ACETAMINOPHEN\CODEINE PHOSPHATE [Concomitant]
     Active Substance: ACETAMINOPHEN\CODEINE PHOSPHATE
     Dosage: UNK, TID (3 TIMES A DAY)
     Route: 065
  13. LORAZEPAM [Concomitant]
     Active Substance: LORAZEPAM
     Indication: Product used for unknown indication
     Dosage: 8 MILLIGRAM, QD (8 MILLIGRAM, ONCE A DAY)
  14. LORAZEPAM [Concomitant]
     Active Substance: LORAZEPAM
     Dosage: 8 MILLIGRAM, QD (8 MILLIGRAM, ONCE A DAY)
  15. LORAZEPAM [Concomitant]
     Active Substance: LORAZEPAM
     Dosage: 8 MILLIGRAM, QD (8 MILLIGRAM, ONCE A DAY)
     Route: 065
  16. LORAZEPAM [Concomitant]
     Active Substance: LORAZEPAM
     Dosage: 8 MILLIGRAM, QD (8 MILLIGRAM, ONCE A DAY)
     Route: 065
  17. LORAZEPAM [Concomitant]
     Active Substance: LORAZEPAM
     Dosage: 12 MILLIGRAM, QD (12 MILLIGRAM, ONCE A DAY)
  18. LORAZEPAM [Concomitant]
     Active Substance: LORAZEPAM
     Dosage: 12 MILLIGRAM, QD (12 MILLIGRAM, ONCE A DAY)
  19. LORAZEPAM [Concomitant]
     Active Substance: LORAZEPAM
     Dosage: 12 MILLIGRAM, QD (12 MILLIGRAM, ONCE A DAY)
     Route: 065
  20. LORAZEPAM [Concomitant]
     Active Substance: LORAZEPAM
     Dosage: 12 MILLIGRAM, QD (12 MILLIGRAM, ONCE A DAY)
     Route: 065
  21. LORAZEPAM [Concomitant]
     Active Substance: LORAZEPAM
     Dosage: 18 MILLIGRAM, QD (18 MILLIGRAM, ONCE A DAY)
  22. LORAZEPAM [Concomitant]
     Active Substance: LORAZEPAM
     Dosage: 18 MILLIGRAM, QD (18 MILLIGRAM, ONCE A DAY)
     Route: 065
  23. LORAZEPAM [Concomitant]
     Active Substance: LORAZEPAM
     Dosage: 18 MILLIGRAM, QD (18 MILLIGRAM, ONCE A DAY)
  24. LORAZEPAM [Concomitant]
     Active Substance: LORAZEPAM
     Dosage: 18 MILLIGRAM, QD (18 MILLIGRAM, ONCE A DAY)
     Route: 065
  25. MORPHINE SULFATE [Concomitant]
     Active Substance: MORPHINE SULFATE
     Indication: Product used for unknown indication
     Dosage: 2 MILLIGRAM, TID (6 MILLIGRAM, DAILY ((2MG THREE TIMES A DAY)
  26. MORPHINE SULFATE [Concomitant]
     Active Substance: MORPHINE SULFATE
     Dosage: 2 MILLIGRAM, TID (6 MILLIGRAM, DAILY ((2MG THREE TIMES A DAY)
     Route: 042
  27. MORPHINE SULFATE [Concomitant]
     Active Substance: MORPHINE SULFATE
     Dosage: 2 MILLIGRAM, TID (6 MILLIGRAM, DAILY ((2MG THREE TIMES A DAY)
     Route: 042
  28. MORPHINE SULFATE [Concomitant]
     Active Substance: MORPHINE SULFATE
     Dosage: 2 MILLIGRAM, TID (6 MILLIGRAM, DAILY ((2MG THREE TIMES A DAY)
  29. BROMOCRIPTINE [Concomitant]
     Active Substance: BROMOCRIPTINE
     Indication: Product used for unknown indication
     Dosage: 2.5 MILLIGRAM, TID (7.5 MILLIGRAM, QD, 2.5 MILLIGRAM, 3 TIMES A DAY)
  30. BROMOCRIPTINE [Concomitant]
     Active Substance: BROMOCRIPTINE
     Dosage: 2.5 MILLIGRAM, TID (7.5 MILLIGRAM, QD, 2.5 MILLIGRAM, 3 TIMES A DAY)
     Route: 065
  31. BROMOCRIPTINE [Concomitant]
     Active Substance: BROMOCRIPTINE
     Dosage: 2.5 MILLIGRAM, TID (7.5 MILLIGRAM, QD, 2.5 MILLIGRAM, 3 TIMES A DAY)
     Route: 065
  32. BROMOCRIPTINE [Concomitant]
     Active Substance: BROMOCRIPTINE
     Dosage: 2.5 MILLIGRAM, TID (7.5 MILLIGRAM, QD, 2.5 MILLIGRAM, 3 TIMES A DAY)

REACTIONS (12)
  - Neuroleptic malignant syndrome [Unknown]
  - Delirium [Unknown]
  - Hallucination, visual [Unknown]
  - Myoclonus [Unknown]
  - Anaemia [Unknown]
  - Musculoskeletal stiffness [Unknown]
  - Dyskinesia [Unknown]
  - Gastrointestinal disorder [Unknown]
  - Nausea [Unknown]
  - Vomiting [Unknown]
  - Hostility [Unknown]
  - Withdrawal syndrome [Unknown]
